FAERS Safety Report 8311755-8 (Version None)
Quarter: 2012Q2

REPORT INFORMATION
  Report Type: 
  Country: None (occurrence: None)
  Receive Date: 20120425
  Receipt Date: 20120424
  Transmission Date: 20120825
  Serious: Yes (Death, Hospitalization, Other)
  Sender: FDA-Public Use
  Company Number: DE-ABBOTT-10P-062-0622706-00

PATIENT
  Age: 33 Year
  Sex: Female

DRUGS (5)
  1. HUMIRA [Suspect]
     Indication: RHEUMATOID ARTHRITIS
     Dates: start: 20041101
  2. METHOTREXATE [Concomitant]
     Dates: start: 20041116, end: 20061122
  3. ARAVA [Concomitant]
     Indication: RHEUMATOID ARTHRITIS
     Dates: start: 19991101
  4. METHOTREXATE [Concomitant]
     Indication: RHEUMATOID ARTHRITIS
     Dates: start: 19951201
  5. LEF [Concomitant]
     Indication: PRODUCT USED FOR UNKNOWN INDICATION
     Dates: start: 20041116, end: 20070522

REACTIONS (8)
  - APHASIA [None]
  - PARALYSIS [None]
  - SURGERY [None]
  - MULTI-ORGAN FAILURE [None]
  - POST PROCEDURAL SEPSIS [None]
  - BACTERIAL INFECTION [None]
  - SEPTIC SHOCK [None]
  - POSTOPERATIVE WOUND INFECTION [None]
